FAERS Safety Report 5078585-4 (Version None)
Quarter: 2006Q3

REPORT INFORMATION
  Report Type: 
  Country: None (occurrence: None)
  Receive Date: 20060810
  Receipt Date: 20060810
  Transmission Date: 20061208
  Serious: No
  Sender: FDA-Public Use
  Company Number: None

PATIENT
  Age: 72 Year
  Sex: Female
  Weight: 72.5755 kg

DRUGS (1)
  1. ISOVUE-128 [Suspect]
     Indication: CATHETERISATION CARDIAC
     Dosage: 79ML INTRA ARTERIAL
     Route: 013
     Dates: start: 20060809

REACTIONS (4)
  - CHILLS [None]
  - DYSPHAGIA [None]
  - HYPOTENSION [None]
  - POST PROCEDURAL COMPLICATION [None]
